FAERS Safety Report 7263558-3 (Version None)
Quarter: 2011Q1

REPORT INFORMATION
  Report Type: 
  Country: None (occurrence: None)
  Receive Date: 20110130
  Receipt Date: 20101203
  Transmission Date: 20110831
  Serious: No
  Sender: FDA-Public Use
  Company Number: US-ABBOTT-10P-163-0689614-00

PATIENT
  Age: 52 Year
  Sex: Female

DRUGS (4)
  1. VALTREX [Concomitant]
     Indication: PRODUCT USED FOR UNKNOWN INDICATION
  2. METHOTREXATE [Concomitant]
     Indication: PRODUCT USED FOR UNKNOWN INDICATION
     Dosage: 6 PILLS QWK
  3. PREMPRO [Concomitant]
     Indication: PRODUCT USED FOR UNKNOWN INDICATION
  4. HUMIRA [Suspect]
     Indication: RHEUMATOID ARTHRITIS
     Dates: start: 20101201

REACTIONS (5)
  - DEPRESSED MOOD [None]
  - FATIGUE [None]
  - DECREASED APPETITE [None]
  - PAIN IN EXTREMITY [None]
  - CRYING [None]
